FAERS Safety Report 12877089 (Version 1)
Quarter: 2016Q4

REPORT INFORMATION
  Report Type: Spontaneous
  Country: US (occurrence: US)
  Receive Date: 20161024
  Receipt Date: 20161024
  Transmission Date: 20170207
  Serious: No
  Sender: FDA-Public Use
  Company Number: US-BIOGEN-2016BI00305971

PATIENT
  Sex: Female

DRUGS (1)
  1. TECFIDERA [Suspect]
     Active Substance: DIMETHYL FUMARATE
     Indication: MULTIPLE SCLEROSIS
     Dosage: MAINTENANCE DOSE
     Route: 048

REACTIONS (7)
  - Blood iron decreased [Recovered/Resolved]
  - Alopecia [Recovered/Resolved]
  - Fall [Recovered/Resolved]
  - Cataract [Recovered/Resolved]
  - Joint injury [Recovered/Resolved]
  - Meniscus injury [Recovered/Resolved]
  - Contusion [Not Recovered/Not Resolved]
